FAERS Safety Report 4816844-8 (Version None)
Quarter: 2005Q4

REPORT INFORMATION
  Report Type: 
  Country: None (occurrence: None)
  Receive Date: 20051101
  Receipt Date: 20051021
  Transmission Date: 20060501
  Serious: Yes (Hospitalization)
  Sender: FDA-Public Use
  Company Number: US-JNJFOC-20051004709

PATIENT
  Sex: Female
  Weight: 112.95 kg

DRUGS (28)
  1. REMICADE [Suspect]
     Route: 042
  2. CLARITIN [Concomitant]
     Indication: PREMEDICATION
  3. TYLENOL (CAPLET) [Concomitant]
     Indication: PREMEDICATION
  4. ALBUTEROL [Concomitant]
  5. ASPIRIN [Concomitant]
  6. ATENOLOL [Concomitant]
     Indication: BLOOD PRESSURE
  7. NOVOLIN 70/30 [Concomitant]
  8. NOVOLIN 70/30 [Concomitant]
  9. COLACE [Concomitant]
  10. COUMADIN [Concomitant]
     Dosage: ON MONDAY AND WEDNESDAY
  11. COUMADIN [Concomitant]
     Indication: ATRIAL FIBRILLATION
  12. DIGOXIN [Concomitant]
  13. FLEXERIL [Concomitant]
  14. FOSINOPRIL SODIUM [Concomitant]
  15. HERBAL MEDS [Concomitant]
     Indication: PSORIASIS
  16. HYDROXYZINE HYDROCHLORIDE [Concomitant]
  17. OMEGA 3 [Concomitant]
     Indication: VITAMIN SUPPLEMENTATION
  18. OXYCONTIN [Concomitant]
     Indication: PAIN
  19. PRILOSEC OTC [Concomitant]
  20. SENNA LAX [Concomitant]
     Indication: LAXATIVE SUPPORTIVE CARE
  21. VITAMIN E [Concomitant]
     Indication: VITAMIN SUPPLEMENTATION
  22. REGULAR INSULIN [Concomitant]
     Dosage: SLIDING SCALE
  23. LASIX [Concomitant]
  24. LESCOL [Concomitant]
  25. LORAZEPAM [Concomitant]
     Indication: ANXIETY
  26. METALACONE [Concomitant]
  27. CETAPHIL/TRIAMCINOLONE [Concomitant]
  28. DOCUSATE SODIUM [Concomitant]

REACTIONS (6)
  - ATRIAL FIBRILLATION [None]
  - DYSPNOEA [None]
  - FEELING ABNORMAL [None]
  - FLUSHING [None]
  - INFUSION RELATED REACTION [None]
  - LUNG DISORDER [None]
